FAERS Safety Report 8863353 (Version 1)
Quarter: 2012Q4

REPORT INFORMATION
  Report Type: 
  Country: JP (occurrence: JP)
  Receive Date: 20121025
  Receipt Date: 20121025
  Transmission Date: 20130627
  Serious: Yes (Other)
  Sender: FDA-Public Use
  Company Number: JP-GLAXOSMITHKLINE-B0837637A

PATIENT
  Age: 74 Year
  Sex: Male

DRUGS (5)
  1. REQUIP [Suspect]
     Indication: PARKINSON^S DISEASE
     Dosage: 2MG Per day
     Route: 048
     Dates: start: 20121001, end: 20121007
  2. REQUIP [Suspect]
     Indication: PARKINSON^S DISEASE
     Dosage: 4MG Per day
     Route: 048
     Dates: start: 20121008
  3. DONEPEZIL HYDROCHLORIDE [Concomitant]
     Route: 048
  4. PLETAAL [Concomitant]
     Dosage: 100MG Per day
     Route: 048
  5. VESICARE [Concomitant]
     Dosage: 5MG Twice per day
     Route: 048

REACTIONS (3)
  - Dizziness [Recovered/Resolved]
  - Gait disturbance [Recovered/Resolved]
  - Dysstasia [Unknown]
